FAERS Safety Report 4596651-4 (Version None)
Quarter: 2005Q1

REPORT INFORMATION
  Report Type: 
  Country: None (occurrence: None)
  Receive Date: 20050228
  Receipt Date: 20040521
  Transmission Date: 20050727
  Serious: Yes (Disabling)
  Sender: FDA-Public Use
  Company Number: 8042

PATIENT
  Age: 74 Year
  Sex: Female

DRUGS (6)
  1. METHOTREXATE [Suspect]
     Indication: RHEUMATOID ARTHRITIS
     Dosage: 10 MG PO
     Route: 048
     Dates: start: 20020101
  2. PREDNISOLONE [Concomitant]
  3. ACETAMINOPHEN [Concomitant]
  4. QUININE SULFATE [Concomitant]
  5. FOLIC ACID [Concomitant]
  6. ASPIRIN [Concomitant]

REACTIONS (1)
  - ACUTE PSYCHOSIS [None]
